FAERS Safety Report 5141564-2 (Version None)
Quarter: 2006Q4

REPORT INFORMATION
  Report Type: 
  Country: None (occurrence: None)
  Receive Date: 20061030
  Receipt Date: 20061030
  Transmission Date: 20070319
  Serious: Yes (Disabling, Other)
  Sender: FDA-Public Use
  Company Number: None

PATIENT
  Sex: Female
  Weight: 91.173 kg

DRUGS (3)
  1. NEURONTIN [Suspect]
     Indication: ARTHRALGIA
     Dosage: 600MG  3 A DAY   DAILY   PO
     Route: 048
     Dates: start: 20020322, end: 20061029
  2. NEURONTIN [Suspect]
     Indication: BACK PAIN
     Dosage: 600MG  3 A DAY   DAILY   PO
     Route: 048
     Dates: start: 20020322, end: 20061029
  3. NEURONTIN [Suspect]
     Indication: PAIN IN EXTREMITY
     Dosage: 600MG  3 A DAY   DAILY   PO
     Route: 048
     Dates: start: 20020322, end: 20061029

REACTIONS (7)
  - AMNESIA [None]
  - BACK PAIN [None]
  - DEPRESSION [None]
  - DRUG INEFFECTIVE [None]
  - IRRITABILITY [None]
  - PAIN [None]
  - SOCIAL AVOIDANT BEHAVIOUR [None]
